FAERS Safety Report 19911748 (Version 1)
Quarter: 2021Q4

REPORT INFORMATION
  Report Type: Spontaneous
  Country: US (occurrence: US)
  Receive Date: 20211002
  Receipt Date: 20211002
  Transmission Date: 20220304
  Serious: Yes (Other)
  Sender: FDA-Public Use
  Company Number: None

PATIENT
  Age: 32 Year
  Sex: Female
  Weight: 99 kg

DRUGS (1)
  1. LOTRIMIN ANTIFUNGAL (MICONAZOLE NITRATE) [Suspect]
     Active Substance: MICONAZOLE NITRATE
     Indication: Rash
     Route: 061
     Dates: start: 20200430, end: 20210115

REACTIONS (3)
  - Thermal burn [None]
  - Application site burn [None]
  - Application site rash [None]

NARRATIVE: CASE EVENT DATE: 20200415
